FAERS Safety Report 6801922-4 (Version None)
Quarter: 2010Q2

REPORT INFORMATION
  Report Type: 
  Country: None (occurrence: None)
  Receive Date: 20100629
  Receipt Date: 20100617
  Transmission Date: 20101027
  Serious: Yes (Other)
  Sender: FDA-Public Use
  Company Number: US-PFIZER INC-2010076687

PATIENT
  Sex: Female

DRUGS (3)
  1. LYRICA [Suspect]
     Indication: BACK PAIN
     Dosage: 50 MG, 1X/DAY
     Route: 048
     Dates: start: 20091201
  2. LYRICA [Suspect]
     Dosage: 100 MG, 2X/DAY
     Route: 048
  3. ZOLOFT [Concomitant]
     Indication: DEPRESSION
     Dosage: UNK

REACTIONS (4)
  - ASCITES [None]
  - FLUID RETENTION [None]
  - MOOD ALTERED [None]
  - NEGATIVE THOUGHTS [None]
